FAERS Safety Report 9659300 (Version 2)
Quarter: 2013Q4

REPORT INFORMATION
  Report Type: Spontaneous
  Country: US (occurrence: US)
  Receive Date: 20131031
  Receipt Date: 20131031
  Transmission Date: 20140711
  Serious: No
  Sender: FDA-Public Use
  Company Number: US-HORIZON-DUE-0050-2013

PATIENT
  Age: 49 Year
  Sex: Female

DRUGS (3)
  1. DUEXIS [Suspect]
     Indication: BACK PAIN
     Route: 048
     Dates: start: 20130808, end: 20130815
  2. LYRICA [Concomitant]
  3. LIPITOR [Concomitant]

REACTIONS (3)
  - Rash erythematous [Recovered/Resolved]
  - Pruritus [Recovered/Resolved]
  - Drug ineffective [Recovered/Resolved]
